FAERS Safety Report 5383533-3 (Version None)
Quarter: 2007Q3

REPORT INFORMATION
  Report Type: 
  Country: None (occurrence: None)
  Receive Date: 20070706
  Receipt Date: 20070622
  Transmission Date: 20080115
  Serious: Yes (Hospitalization, Other)
  Sender: FDA-Public Use
  Company Number: 2007SP013068

PATIENT
  Age: 26 Year
  Sex: Female

DRUGS (3)
  1. BETAMETHASONE [Suspect]
     Indication: ASTHMA
     Dosage: 2 MG; PO
     Route: 048
     Dates: start: 20070401
  2. BACTRIM [Suspect]
     Indication: PNEUMONIA
     Dosage: ; PO
     Route: 048
     Dates: start: 20070414, end: 20070604
  3. METFORMIN HCL [Concomitant]

REACTIONS (1)
  - BLOOD GLUCOSE DECREASED [None]
